FAERS Safety Report 11595716 (Version 1)
Quarter: 2015Q4

REPORT INFORMATION
  Report Type: Spontaneous
  Country: US (occurrence: US)
  Receive Date: 20151006
  Receipt Date: 20151006
  Transmission Date: 20160304
  Serious: No
  Sender: FDA-Public Use
  Company Number: US-BAYER-2015-432570

PATIENT
  Age: 19 Year
  Sex: Female

DRUGS (1)
  1. SKYLA [Suspect]
     Active Substance: LEVONORGESTREL
     Indication: CONTRACEPTION
     Dosage: UNK
     Route: 015
     Dates: start: 2013, end: 201507

REACTIONS (4)
  - Amenorrhoea [None]
  - Menorrhagia [None]
  - Abdominal pain lower [None]
  - Depressed mood [None]

NARRATIVE: CASE EVENT DATE: 2015
